FAERS Safety Report 12660426 (Version 1)
Quarter: 2016Q3

REPORT INFORMATION
  Report Type: Spontaneous
  Country: US (occurrence: US)
  Receive Date: 20160817
  Receipt Date: 20160817
  Transmission Date: 20161109
  Serious: Yes (Other)
  Sender: FDA-Public Use
  Company Number: US-SAOL THERAPEUTICS-2016SAO00418

PATIENT
  Age: 21 Year
  Sex: Female

DRUGS (3)
  1. COMPOUNDED BACLOFEN [Suspect]
     Active Substance: BACLOFEN
     Indication: MUSCLE SPASTICITY
     Dosage: 1049.5 ?G, \DAY
     Route: 037
  2. COMPOUNDED BACLOFEN [Suspect]
     Active Substance: BACLOFEN
     Indication: CEREBRAL PALSY
  3. COMPOUNDED BACLOFEN [Suspect]
     Active Substance: BACLOFEN
     Indication: PARKINSON^S DISEASE

REACTIONS (13)
  - Drooling [Unknown]
  - Nightmare [Unknown]
  - Loss of consciousness [Unknown]
  - Device malfunction [Recovered/Resolved]
  - Therapeutic response decreased [Unknown]
  - Speech disorder [Unknown]
  - Dysarthria [Unknown]
  - Emotional distress [Unknown]
  - Underdose [Unknown]
  - Fall [Unknown]
  - Night sweats [Unknown]
  - Discomfort [Unknown]
  - Injury [Not Recovered/Not Resolved]

NARRATIVE: CASE EVENT DATE: 2014
